FAERS Safety Report 14554686 (Version 1)
Quarter: 2018Q1

REPORT INFORMATION
  Report Type: Spontaneous
  Country: US (occurrence: US)
  Receive Date: 20180217
  Receipt Date: 20180217
  Transmission Date: 20180509
  Serious: Yes (Hospitalization)
  Sender: FDA-Public Use
  Company Number: None

PATIENT
  Age: 22 Year
  Sex: Male
  Weight: 83.91 kg

DRUGS (1)
  1. GAMMAKED [Suspect]
     Active Substance: HUMAN IMMUNOGLOBULIN G
     Indication: POLYMYOSITIS
     Dosage: 160 GRAMS OVER 2 DAYS EVERY 4 WEEKS IV
     Route: 042
     Dates: start: 20171228

REACTIONS (1)
  - Chest pain [None]

NARRATIVE: CASE EVENT DATE: 20171228
